FAERS Safety Report 15850409 (Version 1)
Quarter: 2019Q1

REPORT INFORMATION
  Report Type: Spontaneous
  Country: US (occurrence: US)
  Receive Date: 20190121
  Receipt Date: 20190121
  Transmission Date: 20190417
  Serious: Yes (Other)
  Sender: FDA-Public Use
  Company Number: US-ELI_LILLY_AND_COMPANY-US201901008309

PATIENT
  Sex: Female

DRUGS (1)
  1. HUMULIN R U-500 [Suspect]
     Active Substance: INSULIN HUMAN
     Indication: PRODUCT USED FOR UNKNOWN INDICATION
     Dosage: UNK, TID
     Route: 065

REACTIONS (6)
  - Renal failure [Unknown]
  - Tracheomalacia [Unknown]
  - Pain [Unknown]
  - Hypertension [Unknown]
  - Nephropathy [Unknown]
  - Dysphagia [Unknown]
